FAERS Safety Report 10451529 (Version 1)
Quarter: 2014Q3

REPORT INFORMATION
  Report Type: Spontaneous
  Country: US (occurrence: US)
  Receive Date: 20140913
  Receipt Date: 20140913
  Transmission Date: 20150326
  Serious: No
  Sender: FDA-Public Use
  Company Number: US-ASTRAZENECA-2014SE66115

PATIENT
  Sex: Male

DRUGS (1)
  1. SEROQUEL [Suspect]
     Active Substance: QUETIAPINE FUMARATE
     Route: 048
     Dates: start: 20140830

REACTIONS (5)
  - Psychomotor hyperactivity [Unknown]
  - Insomnia [Unknown]
  - Soliloquy [Unknown]
  - Dyspnoea [Unknown]
  - Nervousness [Unknown]
